FAERS Safety Report 4476575-3 (Version None)
Quarter: 2004Q4

REPORT INFORMATION
  Report Type: 
  Country: None (occurrence: None)
  Receive Date: 20041013
  Receipt Date: 20040930
  Transmission Date: 20050328
  Serious: Yes (Other)
  Sender: FDA-Public Use
  Company Number: MEDI-0002284

PATIENT
  Age: 81 Year
  Sex: Male
  Weight: 71.6683 kg

DRUGS (9)
  1. ETHYOL [Suspect]
     Indication: CHEMOTHERAPY
     Dosage: 500 MG, 5 IN 1 WK, SUBCUTANEOUS
     Route: 058
     Dates: start: 20020916, end: 20020925
  2. CARBOPLATIN [Concomitant]
  3. TAXOL [Concomitant]
  4. SIMVASTATIN [Concomitant]
  5. METOPROLOL TARTRATE [Concomitant]
  6. ASPIRIN ENTERIC (ACETYLSALICYLIC ACID) [Concomitant]
  7. MULTIVITAMINS (ERGOCALCIFEROL, ASCORBIC ACID, FOLIC ACID, THIAMINE HYD [Concomitant]
  8. HYDROCORTISONE CREAM (HYDROCORTISONE) [Concomitant]
  9. RADIATION THERAPY [Concomitant]

REACTIONS (2)
  - INCREASED UPPER AIRWAY SECRETION [None]
  - INJECTION SITE ERYTHEMA [None]
